FAERS Safety Report 5296279-7 (Version None)
Quarter: 2007Q2

REPORT INFORMATION
  Report Type: 
  Country: None (occurrence: None)
  Receive Date: 20070413
  Receipt Date: 20070402
  Transmission Date: 20071010
  Serious: Yes (Other)
  Sender: FDA-Public Use
  Company Number: PHEH2007US04080

PATIENT
  Age: 44 Year
  Sex: Female

DRUGS (1)
  1. ZELNORM [Suspect]
     Indication: IRRITABLE BOWEL SYNDROME
     Dosage: 6 MG, BID
     Route: 065
     Dates: end: 20070330

REACTIONS (3)
  - ABDOMINAL PAIN [None]
  - FAECES DISCOLOURED [None]
  - HAEMATOCHEZIA [None]
